FAERS Safety Report 24792387 (Version 4)
Quarter: 2025Q1

REPORT INFORMATION
  Report Type: Spontaneous
  Country: DE (occurrence: DE)
  Receive Date: 20241231
  Receipt Date: 20250121
  Transmission Date: 20250408
  Serious: Yes (Hospitalization, Other)
  Sender: AUROBINDO
  Company Number: DE-BRISTOL-MYERS SQUIBB COMPANY-2024-152602

PATIENT
  Age: 72 Year
  Sex: Male
  Weight: 69 kg

DRUGS (3)
  1. CARBOPLATIN [Suspect]
     Active Substance: CARBOPLATIN
     Indication: Non-small cell lung cancer
     Route: 042
     Dates: start: 20240711
  2. OPDIVO [Suspect]
     Active Substance: NIVOLUMAB
     Indication: Non-small cell lung cancer
     Dosage: 360 MILLIGRAM, EVERY WEEK (EVERY WEEKS)
     Route: 042
     Dates: start: 20240711, end: 20240910
  3. YERVOY [Suspect]
     Active Substance: IPILIMUMAB
     Indication: Non-small cell lung cancer
     Route: 042
     Dates: start: 20240711, end: 20240910

REACTIONS (9)
  - Infective exacerbation of chronic obstructive airways disease [Recovered/Resolved]
  - Pseudomonas infection [Unknown]
  - Pneumothorax spontaneous [Recovered/Resolved]
  - Pneumonitis [Unknown]
  - Tubulointerstitial nephritis [Recovered/Resolved]
  - Immune-mediated lung disease [Unknown]
  - Hypothyroidism [Not Recovered/Not Resolved]
  - Klebsiella infection [Unknown]
  - Herpes simplex [Unknown]

NARRATIVE: CASE EVENT DATE: 20240921
